FAERS Safety Report 5149735-6 (Version None)
Quarter: 2006Q4

REPORT INFORMATION
  Report Type: 
  Country: None (occurrence: None)
  Receive Date: 20061113
  Receipt Date: 20061016
  Transmission Date: 20070319
  Serious: Yes (Disabling)
  Sender: FDA-Public Use
  Company Number: US-ROCHE-467709

PATIENT
  Age: 61 Year
  Sex: Female
  Weight: 59 kg

DRUGS (3)
  1. BONIVA [Suspect]
     Indication: BONE DENSITY DECREASED
     Dosage: PATIENT RECEIVED TWO DOSES, ONE IN APRIL 2006 AND ONE IN MAY 2006.
     Route: 048
     Dates: start: 20060415, end: 20060515
  2. UNKNOWN MEDICATION FOR PAIN [Concomitant]
     Indication: BACK DISORDER
     Route: 048
  3. CATAPRES [Concomitant]
     Dosage: DOSAGE REGIMEN REPORTED AS DAILY DRUG REPORTED AS CATAPRESS PATCH
     Route: 062

REACTIONS (1)
  - OSTEONECROSIS [None]
